FAERS Safety Report 5311150-X (Version None)
Quarter: 2007Q2

REPORT INFORMATION
  Report Type: 
  Country: None (occurrence: None)
  Receive Date: 20070430
  Receipt Date: 20070417
  Transmission Date: 20071010
  Serious: No
  Sender: FDA-Public Use
  Company Number: MX-ELI_LILLY_AND_COMPANY-MX200704004082

PATIENT
  Age: 43 Year
  Sex: Female
  Weight: 81 kg

DRUGS (1)
  1. ZYPREXA [Suspect]
     Dosage: 30 MG, UNK
     Route: 030
     Dates: start: 20070301

REACTIONS (4)
  - BLOOD CHOLESTEROL INCREASED [None]
  - EPISTAXIS [None]
  - HEPATOCELLULAR DAMAGE [None]
  - WEIGHT INCREASED [None]
